FAERS Safety Report 7938217-1 (Version None)
Quarter: 2011Q4

REPORT INFORMATION
  Report Type: 
  Country: None (occurrence: None)
  Receive Date: 20111123
  Receipt Date: 20111111
  Transmission Date: 20120403
  Serious: Yes (Hospitalization)
  Sender: FDA-Public Use
  Company Number: TW-CELGENEUS-153-50794-11110003

PATIENT
  Sex: Male
  Weight: 78 kg

DRUGS (1)
  1. VIDAZA [Suspect]
     Dosage: 100 MILLIGRAM
     Route: 065
     Dates: start: 20111003, end: 20111012

REACTIONS (1)
  - PNEUMONIA [None]
